FAERS Safety Report 4983163-9 (Version None)
Quarter: 2006Q2

REPORT INFORMATION
  Report Type: 
  Country: None (occurrence: None)
  Receive Date: 20060419
  Receipt Date: 20060328
  Transmission Date: 20061013
  Serious: Yes (Other)
  Sender: FDA-Public Use
  Company Number: CA200604001195

PATIENT
  Sex: Female

DRUGS (2)
  1. HUMULIN 70/30 [Suspect]
  2. HP ERGO, TEAL/CLEAR (HUMAPEN ERGO, TEAL/CLEAR) PEN, REUSABLE [Concomitant]

REACTIONS (3)
  - DEVICE MALFUNCTION [None]
  - MALAISE [None]
  - TUMOUR INVASION [None]
